FAERS Safety Report 20720602 (Version 1)
Quarter: 2022Q2

REPORT INFORMATION
  Report Type: Spontaneous
  Country: US (occurrence: None)
  Receive Date: 20220417
  Receipt Date: 20220417
  Transmission Date: 20220721
  Serious: Yes (Hospitalization)
  Sender: FDA-Public Use
  Company Number: None

PATIENT
  Age: 60 Year
  Sex: Male
  Weight: 90 kg

DRUGS (6)
  1. YESCARTA [Suspect]
     Active Substance: AXICABTAGENE CILOLEUCEL
     Indication: Diffuse large B-cell lymphoma
     Dosage: FREQUENCY : ONCE;?
     Route: 041
     Dates: start: 20220118, end: 20220118
  2. ACTEMRA [Concomitant]
     Active Substance: TOCILIZUMAB
  3. anakinra (Kineret) subcutaneous injection [Concomitant]
  4. dexAMETHasone (Decadron) injection [Concomitant]
  5. levETIRAcetam (Keppra) [Concomitant]
  6. piperacillin-tazobactam (Zosyn [Concomitant]

REACTIONS (2)
  - Immune effector cell-associated neurotoxicity syndrome [None]
  - Cytokine release syndrome [None]

NARRATIVE: CASE EVENT DATE: 20220118
